FAERS Safety Report 10626500 (Version 1)
Quarter: 2014Q4

REPORT INFORMATION
  Report Type: Spontaneous
  Country: FR (occurrence: FR)
  Receive Date: 20141204
  Receipt Date: 20141204
  Transmission Date: 20150529
  Serious: Yes (Death, Other)
  Sender: FDA-Public Use
  Company Number: FR-BRISTOL-MYERS SQUIBB COMPANY-21651658

PATIENT
  Age: 88 Year
  Sex: Male

DRUGS (5)
  1. XATRAL [Concomitant]
     Active Substance: ALFUZOSIN
  2. COUMADINE [Suspect]
     Active Substance: WARFARIN SODIUM
     Route: 048
  3. SPECIAFOLDINE [Concomitant]
     Active Substance: FOLIC ACID
  4. LASILIX [Concomitant]
     Active Substance: FUROSEMIDE
  5. TARDYFERON [Concomitant]
     Active Substance: FERROUS SULFATE\FOLIC ACID

REACTIONS (5)
  - Subdural haematoma [Fatal]
  - Haemorrhage intracranial [Fatal]
  - Femur fracture [Unknown]
  - Head injury [Unknown]
  - Fall [Unknown]

NARRATIVE: CASE EVENT DATE: 20130825
